FAERS Safety Report 14860255 (Version 1)
Quarter: 2018Q2

REPORT INFORMATION
  Report Type: Spontaneous
  Country: US (occurrence: US)
  Receive Date: 20180423
  Receipt Date: 20180423
  Transmission Date: 20180711
  Serious: No
  Sender: FDA-Public Use
  Company Number: None

PATIENT
  Age: 75 Year
  Sex: Male
  Weight: 88.2 kg

DRUGS (8)
  1. METOPROLOL TARTRATE 50 MG TAB [Suspect]
     Active Substance: METOPROLOL TARTRATE
     Indication: ATRIAL FIBRILLATION
     Dosage: 1 TABLET(S); 2AM1PM; PO?
     Route: 048
  2. PRAVASTATIN SODIUM. [Concomitant]
     Active Substance: PRAVASTATIN SODIUM
  3. LISINOPRIL. [Concomitant]
     Active Substance: LISINOPRIL
  4. OMEPRAZOLE DR [Concomitant]
     Active Substance: OMEPRAZOLE
  5. XARELTO [Concomitant]
     Active Substance: RIVAROXABAN
  6. FENOFIBRATE. [Concomitant]
     Active Substance: FENOFIBRATE
  7. METOPROLOL TARTRATE 50 MG TAB [Suspect]
     Active Substance: METOPROLOL TARTRATE
     Indication: ATRIAL FIBRILLATION
     Dosage: 1 TABLET(S); 2 AM 1 PM; ORAL?
     Route: 048
     Dates: start: 20180326, end: 20180405
  8. METFORMIN HCL [Concomitant]
     Active Substance: METFORMIN HYDROCHLORIDE

REACTIONS (2)
  - Drug ineffective [None]
  - Product quality issue [None]

NARRATIVE: CASE EVENT DATE: 20180326
